FAERS Safety Report 16406660 (Version 1)
Quarter: 2019Q2

REPORT INFORMATION
  Report Type: Spontaneous
  Country: FR (occurrence: FR)
  Receive Date: 20190607
  Receipt Date: 20190607
  Transmission Date: 20190711
  Serious: Yes (Hospitalization)
  Sender: FDA-Public Use
  Company Number: FR-ANIPHARMA-2019-FR-000122

PATIENT
  Age: 74 Year
  Sex: Male

DRUGS (13)
  1. PARACETAMOL [Concomitant]
     Active Substance: ACETAMINOPHEN
     Dosage: 500 MG QD
     Route: 048
  2. PREVISCAN [Concomitant]
     Dosage: 20 MG QD
     Route: 048
  3. OXYBUTYNIN HYDROCHLORIDE [Concomitant]
     Active Substance: OXYBUTYNIN CHLORIDE
     Dosage: 5 MG QD
     Route: 048
  4. CANDESARTAN CILEXETIL. [Suspect]
     Active Substance: CANDESARTAN CILEXETIL
     Indication: CARDIOMYOPATHY
     Dosage: 24 MG QD / 8 MG QD
     Route: 048
     Dates: start: 200703
  5. ALDACTONE [Suspect]
     Active Substance: SPIRONOLACTONE
     Dosage: 1 DF QD
     Route: 048
     Dates: end: 20070303
  6. METFORMIN HYDROCHLORIDE. [Suspect]
     Active Substance: METFORMIN HYDROCHLORIDE
     Dosage: 850 MG BID
     Route: 048
  7. NOVORAPID [Concomitant]
     Active Substance: INSULIN ASPART
     Dosage: UNK
     Route: 065
  8. LANTUS [Suspect]
     Active Substance: INSULIN GLARGINE
     Dosage: EVERY DAY
     Route: 058
  9. LIPUR [Concomitant]
     Active Substance: GEMFIBROZIL
     Dosage: 450 MG QD
     Route: 048
  10. CARDENSIEL [Suspect]
     Active Substance: BISOPROLOL FUMARATE
     Dosage: 5 MG QD
     Route: 048
  11. AMIODARONE [Concomitant]
     Active Substance: AMIODARONE
     Dosage: 200 MG QD
     Route: 048
  12. PROXALYOC [Suspect]
     Active Substance: PIROXICAM
     Dosage: 20 MG QD
     Route: 048
     Dates: end: 20070302
  13. LASILIX [Suspect]
     Active Substance: FUROSEMIDE
     Dosage: 40 MG QD
     Route: 048

REACTIONS (3)
  - Hyperkalaemia [Unknown]
  - Renal failure [Recovered/Resolved]
  - Drug interaction [Unknown]

NARRATIVE: CASE EVENT DATE: 20070302
